FAERS Safety Report 5795652-8 (Version None)
Quarter: 2008Q2

REPORT INFORMATION
  Report Type: 
  Country: None (occurrence: None)
  Receive Date: 20080630
  Receipt Date: 20080620
  Transmission Date: 20081010
  Serious: Yes (Other)
  Sender: FDA-Public Use
  Company Number: FR-PFIZER INC-2008052706

PATIENT
  Sex: Male

DRUGS (13)
  1. TAHOR [Suspect]
     Route: 048
     Dates: start: 20080314, end: 20080421
  2. AUGMENTIN '125' [Suspect]
     Dosage: DAILY DOSE:3GRAM-FREQ:EVERYDAY
     Route: 048
     Dates: start: 20080313, end: 20080402
  3. ROCEPHIN [Suspect]
     Route: 042
     Dates: start: 20080402, end: 20080414
  4. PYOSTACINE [Suspect]
     Dosage: DAILY DOSE:1500MG
     Route: 048
     Dates: start: 20080326, end: 20080417
  5. COZAAR [Concomitant]
  6. ALLOPURINOL [Concomitant]
  7. DOXAZOSIN MESYLATE [Concomitant]
  8. ASPIRIN [Concomitant]
  9. OMEPRAZOLE [Concomitant]
  10. TANAKAN [Concomitant]
  11. RAMIPRIL [Concomitant]
  12. WARFARIN SODIUM [Concomitant]
  13. XATRAL [Concomitant]

REACTIONS (2)
  - EOSINOPHILIA [None]
  - RASH [None]
